FAERS Safety Report 4439514-7 (Version None)
Quarter: 2004Q3

REPORT INFORMATION
  Report Type: 
  Country: None (occurrence: None)
  Receive Date: 20040901
  Receipt Date: 20040901
  Transmission Date: 20050211
  Serious: Yes (Hospitalization)
  Sender: FDA-Public Use
  Company Number: None

PATIENT
  Sex: Female
  Weight: 97.5234 kg

DRUGS (4)
  1. BIAXIN [Suspect]
     Dosage: PO, [PRIOR TO ADMISSION]
     Route: 048
  2. ALBUTEROL [Concomitant]
  3. EPIPEN [Concomitant]
  4. PEN [Concomitant]

REACTIONS (3)
  - SWELLING FACE [None]
  - THROAT TIGHTNESS [None]
  - URTICARIA [None]
